FAERS Safety Report 4637970-2 (Version None)
Quarter: 2005Q2

REPORT INFORMATION
  Report Type: 
  Country: None (occurrence: None)
  Receive Date: 20050418
  Receipt Date: 20040607
  Transmission Date: 20051028
  Serious: Yes (Hospitalization, Other)
  Sender: FDA-Public Use
  Company Number: PHBS2004JP07622

PATIENT
  Age: 82 Year
  Sex: Female
  Weight: 69 kg

DRUGS (3)
  1. DIOVAN [Suspect]
     Indication: ESSENTIAL HYPERTENSION
     Dosage: 40 MG, QD
     Route: 048
     Dates: start: 20030203, end: 20040525
  2. CONIEL [Suspect]
     Indication: HYPERTENSION
     Route: 048
     Dates: start: 20010327, end: 20030806
  3. CONIEL [Suspect]
     Route: 048
     Dates: start: 20030807, end: 20040525

REACTIONS (12)
  - ARTHRALGIA [None]
  - ASPARTATE AMINOTRANSFERASE INCREASED [None]
  - BACK PAIN [None]
  - BLOOD CREATINE PHOSPHOKINASE INCREASED [None]
  - C-REACTIVE PROTEIN INCREASED [None]
  - COUGH [None]
  - DECREASED APPETITE [None]
  - GAMMA-GLUTAMYLTRANSFERASE INCREASED [None]
  - INFECTION [None]
  - MYALGIA [None]
  - PYREXIA [None]
  - RHABDOMYOLYSIS [None]
